FAERS Safety Report 10912732 (Version 1)
Quarter: 2015Q1

REPORT INFORMATION
  Report Type: Spontaneous
  Country: FR (occurrence: FR)
  Receive Date: 20150313
  Receipt Date: 20150313
  Transmission Date: 20150721
  Serious: Yes (Hospitalization)
  Sender: FDA-Public Use
  Company Number: FR-PFIZER INC-2015091162

PATIENT
  Age: 67 Year
  Sex: Male

DRUGS (5)
  1. LASILIX [Concomitant]
     Active Substance: FUROSEMIDE
     Dosage: UNK
  2. BISOPROLOL FUMARATE. [Interacting]
     Active Substance: BISOPROLOL FUMARATE
     Dosage: UNK
  3. PRADAXA [Interacting]
     Active Substance: DABIGATRAN ETEXILATE MESYLATE
     Dosage: 1 DF, 2X/DAY
     Route: 048
     Dates: start: 20150116
  4. CORDARONE [Suspect]
     Active Substance: AMIODARONE HYDROCHLORIDE
     Dosage: 1 DF, QD 5 DAYS/7
     Route: 048
  5. ZESTRIL [Concomitant]
     Active Substance: LISINOPRIL
     Dosage: UNK

REACTIONS (10)
  - Cerebellar haematoma [Recovering/Resolving]
  - Rib fracture [Unknown]
  - Balance disorder [Unknown]
  - Wound [Unknown]
  - Vomiting [Unknown]
  - Nausea [Unknown]
  - Drug interaction [Recovering/Resolving]
  - Fall [Unknown]
  - Loss of consciousness [Unknown]
  - Headache [Unknown]

NARRATIVE: CASE EVENT DATE: 20150116
